FAERS Safety Report 23311471 (Version 1)
Quarter: 2023Q4

REPORT INFORMATION
  Report Type: Spontaneous
  Country: IT (occurrence: IT)
  Receive Date: 20231219
  Receipt Date: 20231219
  Transmission Date: 20240110
  Serious: Yes (Other)
  Sender: FDA-Public Use
  Company Number: None

PATIENT
  Age: 74 Year

DRUGS (12)
  1. OXALIPLATIN [Suspect]
     Active Substance: OXALIPLATIN
     Indication: Malignant peritoneal neoplasm
     Dosage: DURATION: 1 DAY
     Route: 042
     Dates: start: 20231011, end: 20231011
  2. BEVACIZUMAB [Suspect]
     Active Substance: BEVACIZUMAB
     Indication: Malignant peritoneal neoplasm
     Dosage: DURATION: 1 DAY
     Route: 042
     Dates: start: 20231011, end: 20231011
  3. ATORVASTATIN [Concomitant]
     Active Substance: ATORVASTATIN
     Indication: Dyslipidaemia
  4. TAMSULOSIN HYDROCHLORIDE [Concomitant]
     Active Substance: TAMSULOSIN HYDROCHLORIDE
  5. METFORMIN HYDROCHLORIDE [Concomitant]
     Active Substance: METFORMIN HYDROCHLORIDE
     Indication: Diabetes mellitus
  6. LEVOLEUCOVORIN CALCIUM [Suspect]
     Active Substance: LEVOLEUCOVORIN CALCIUM
     Indication: Malignant peritoneal neoplasm
     Dosage: DURATION: 1 DAY
     Route: 042
     Dates: start: 20231011, end: 20231011
  7. ASPIRIN [Concomitant]
     Active Substance: ASPIRIN
  8. AMLODIPINE BESYLATE\OLMESARTAN MEDOXOMIL [Concomitant]
     Active Substance: AMLODIPINE BESYLATE\OLMESARTAN MEDOXOMIL
     Indication: Hypertension
  9. TIROSINT [Concomitant]
     Active Substance: LEVOTHYROXINE SODIUM
     Indication: Thyroiditis
  10. AVODART [Concomitant]
     Active Substance: DUTASTERIDE
     Indication: Benign prostatic hyperplasia
  11. FLUOROURACIL [Suspect]
     Active Substance: FLUOROURACIL
     Indication: Malignant peritoneal neoplasm
     Dosage: DURATION: 1 DAY
     Route: 040
     Dates: start: 20231011, end: 20231011
  12. FLUOROURACIL [Suspect]
     Active Substance: FLUOROURACIL
     Indication: Malignant peritoneal neoplasm
     Route: 042
     Dates: start: 20231011, end: 20231011

REACTIONS (1)
  - Thrombocytopenia [Recovered/Resolved]

NARRATIVE: CASE EVENT DATE: 20231024
